FAERS Safety Report 16989325 (Version 2)
Quarter: 2019Q4

REPORT INFORMATION
  Report Type: Spontaneous
  Country: US (occurrence: US)
  Receive Date: 20191104
  Receipt Date: 20191212
  Transmission Date: 20200122
  Serious: No
  Sender: FDA-Public Use
  Company Number: US-PFIZER INC-2019193837

PATIENT
  Age: 65 Year
  Sex: Female
  Weight: 80 kg

DRUGS (4)
  1. LYRICA [Suspect]
     Active Substance: PREGABALIN
     Dosage: 300 MG, TWICE A DAY (2 CAPSULES BY MOUTH TWICE A DAY, TAKE 1 CAPSULE BY MOUTH AT BED TIME)
     Route: 048
  2. LYRICA [Suspect]
     Active Substance: PREGABALIN
     Indication: FIBROMYALGIA
     Dosage: 450 MG, DAILY (TWO CAPSULE TWICE DAILY, AND ONE CAPSULE AT BEDTIME)
     Route: 048
     Dates: start: 2016
  3. LYRICA [Suspect]
     Active Substance: PREGABALIN
     Indication: PAIN
     Dosage: 450 MG, DAILY (TWO CAPSULE TWICE DAILY, AND ONE CAPSULE AT BEDTIME)
     Route: 048
     Dates: start: 20190430
  4. LYRICA [Suspect]
     Active Substance: PREGABALIN
     Dosage: 300 MG, 2X/DAY [TAKE 2 CAPSULE BY MOUTH TWICE DAILY)
     Route: 048
     Dates: start: 20190523

REACTIONS (3)
  - Withdrawal syndrome [Recovered/Resolved]
  - Product prescribing error [Unknown]
  - Malaise [Unknown]

NARRATIVE: CASE EVENT DATE: 2019
